FAERS Safety Report 6788461-4 (Version None)
Quarter: 2010Q2

REPORT INFORMATION
  Report Type: 
  Country: None (occurrence: None)
  Receive Date: 20100623
  Receipt Date: 20080302
  Transmission Date: 20101027
  Serious: No
  Sender: FDA-Public Use
  Company Number: US-PFIZER INC-2008020480

PATIENT
  Age: 35 Year
  Sex: Female

DRUGS (2)
  1. GEODON [Suspect]
     Indication: MENTAL DISORDER
  2. KEPPRA [Concomitant]
     Indication: EPILEPSY

REACTIONS (2)
  - EXCESSIVE EYE BLINKING [None]
  - INFLUENZA LIKE ILLNESS [None]
